FAERS Safety Report 9502570 (Version 4)
Quarter: 2014Q1

REPORT INFORMATION
  Report Type: Report from Study
  Country: GB (occurrence: GB)
  Receive Date: 20130906
  Receipt Date: 20140321
  Transmission Date: 20141002
  Serious: Yes (Death, Hospitalization)
  Sender: FDA-Public Use
  Company Number: GB-ROCHE-1271273

PATIENT
  Age: 79 Year
  Sex: Female

DRUGS (9)
  1. RANIBIZUMAB [Suspect]
     Indication: AGE-RELATED MACULAR DEGENERATION
     Route: 050
     Dates: start: 20080930
  2. RANIBIZUMAB [Suspect]
     Route: 050
     Dates: start: 20091229
  3. RANIBIZUMAB [Suspect]
     Route: 050
     Dates: start: 20100408
  4. RANIBIZUMAB [Suspect]
     Route: 050
     Dates: start: 20101012
  5. ASPIRIN [Concomitant]
     Indication: PROPHYLAXIS
     Route: 065
     Dates: start: 1969
  6. SIMVASTATIN [Concomitant]
  7. AMLODIPINE [Concomitant]
     Route: 065
     Dates: start: 2005
  8. BIMATOPROST [Concomitant]
     Route: 065
     Dates: start: 2009
  9. SALBUTAMOL [Concomitant]
     Dosage: INHALATION
     Route: 065
     Dates: start: 2010

REACTIONS (9)
  - Cachexia [Fatal]
  - Pre-existing disease [Fatal]
  - Weight decreased [Fatal]
  - Diarrhoea [Unknown]
  - Vomiting [Unknown]
  - Fall [Unknown]
  - Head injury [Unknown]
  - Emphysema [Unknown]
  - Glaucoma [Unknown]
